FAERS Safety Report 7391754-3 (Version None)
Quarter: 2011Q2

REPORT INFORMATION
  Report Type: 
  Country: None (occurrence: None)
  Receive Date: 20110404
  Receipt Date: 20110329
  Transmission Date: 20111010
  Serious: Yes (Hospitalization)
  Sender: FDA-Public Use
  Company Number: US-ROCHE-691693

PATIENT
  Sex: Female
  Weight: 91.4 kg

DRUGS (34)
  1. TOCILIZUMAB [Suspect]
     Indication: RHEUMATOID ARTHRITIS
     Dosage: LAST DOSE PRIOR TO SAE: 24 FEB 2010
     Route: 042
     Dates: start: 20060927, end: 20100317
  2. PROPOXYPHENE [Concomitant]
     Dosage: TDD: 2 PRN
     Dates: start: 20020101
  3. PRILOSEC [Concomitant]
     Route: 048
     Dates: start: 20081201
  4. TORSEMIDE [Concomitant]
  5. PROPRANOLOL [Concomitant]
  6. EPINEPHRINE [Concomitant]
     Dates: start: 20100924, end: 20100924
  7. ASPIRIN [Suspect]
     Indication: CORONARY ARTERY DISEASE
     Route: 065
  8. PLAVIX [Suspect]
     Indication: CORONARY ARTERY DISEASE
     Route: 065
  9. LISINOPRIL [Concomitant]
     Route: 048
  10. ASPIRIN [Concomitant]
     Dates: start: 20091218
  11. ROCEPHIN [Concomitant]
  12. BENADRYL [Concomitant]
     Dates: start: 20100924, end: 20100924
  13. APRESOLINE [Concomitant]
     Dates: start: 20090319
  14. POTASSIUM CHLORIDE [Concomitant]
     Route: 048
     Dates: start: 20051101
  15. ASCORBIC ACID [Concomitant]
     Dates: start: 20071022
  16. PREDNISONE [Concomitant]
     Route: 048
  17. LIPITOR [Concomitant]
     Dates: start: 20050101
  18. CEFTIN [Concomitant]
  19. NIFEDIPINE [Concomitant]
     Dates: start: 20090501
  20. METOPROLOL [Concomitant]
     Dates: start: 20091218
  21. POTASSIUM CHLORIDE [Concomitant]
     Route: 048
  22. LISINOPRIL [Concomitant]
     Route: 048
     Dates: start: 20091116
  23. ZOSYN [Concomitant]
     Dates: start: 20100924, end: 20100924
  24. TOCILIZUMAB [Suspect]
     Dosage: PERMANANTLY DISCONTINUED. LASE DOSE PRIOR TO SAE: 30 JUNE 2010
     Route: 042
     Dates: start: 20100407, end: 20100802
  25. TOCILIZUMAB [Suspect]
     Dosage: PATIENT WAS PREVIOUSLY ENROLLED IN THE STUDY WA18063.
     Route: 042
     Dates: start: 20060411
  26. ALENDRONATE SODIUM [Concomitant]
     Dates: start: 20090424
  27. LASIX [Concomitant]
     Dates: start: 20081201
  28. NORVASC [Concomitant]
     Route: 048
  29. ARICEPT [Concomitant]
     Dates: start: 20090421
  30. NORVASC [Concomitant]
     Route: 048
     Dates: start: 20091218
  31. PREDNISONE [Concomitant]
     Route: 048
     Dates: start: 20090703
  32. OMEPRAZOLE [Concomitant]
  33. VANCOMYCIN [Concomitant]
     Dates: start: 20100924, end: 20100924
  34. ZOFRAN [Concomitant]
     Dates: start: 20100924, end: 20100927

REACTIONS (3)
  - COLITIS [None]
  - DIVERTICULUM [None]
  - UROSEPSIS [None]
